FAERS Safety Report 8574812 (Version 3)
Quarter: 2013Q3

REPORT INFORMATION
  Report Type: Report from Study
  Country: BR (occurrence: BR)
  Receive Date: 20120522
  Receipt Date: 20130820
  Transmission Date: 20140515
  Serious: Yes (Hospitalization, Other)
  Sender: FDA-Public Use
  Company Number: PHHY2011BR116521

PATIENT
  Sex: Male

DRUGS (3)
  1. SANDOSTATIN LAR [Suspect]
     Indication: ACROMEGALY
     Dosage: 20 MG, MONTHLY
     Dates: start: 201105, end: 201107
  2. SANDOSTATIN LAR [Suspect]
     Dosage: 10 MG, MONTHLY
     Dates: start: 20111007
  3. ENALAPRIL [Concomitant]
     Indication: HYPERTENSION
     Dosage: 2 DF, DAILY
     Route: 048

REACTIONS (13)
  - Head and neck cancer [Not Recovered/Not Resolved]
  - Nodule [Not Recovered/Not Resolved]
  - Malaise [Recovered/Resolved]
  - Hormone level abnormal [Recovered/Resolved]
  - Swelling [Recovered/Resolved]
  - Discomfort [Recovered/Resolved]
  - Pain [Recovered/Resolved]
  - Pain in extremity [Recovered/Resolved]
  - Insomnia [Recovering/Resolving]
  - Dyspnoea [Recovering/Resolving]
  - Sensation of heaviness [Unknown]
  - Movement disorder [Unknown]
  - Heart alternation [Unknown]
